FAERS Safety Report 23846477 (Version 1)
Quarter: 2024Q2

REPORT INFORMATION
  Report Type: Spontaneous
  Country: US (occurrence: US)
  Receive Date: 20240513
  Receipt Date: 20240513
  Transmission Date: 20240716
  Serious: No
  Sender: FDA-Public Use
  Company Number: US-APOTEX-2023AP015618

PATIENT
  Age: 47 Year
  Sex: Female

DRUGS (9)
  1. FLUVOXAMINE [Interacting]
     Active Substance: FLUVOXAMINE
     Indication: Antipsychotic therapy
     Dosage: 50 MILLIGRAM, QD (ON DAY 53 TO 56)
     Route: 065
  2. FLUVOXAMINE [Interacting]
     Active Substance: FLUVOXAMINE
     Dosage: 50 MILLIGRAM (DAY 57)
     Route: 065
  3. CLOZAPINE [Interacting]
     Active Substance: CLOZAPINE
     Indication: Antipsychotic therapy
     Dosage: UNK (STARTED ON DAY 35)
     Route: 048
  4. CLOZAPINE [Interacting]
     Active Substance: CLOZAPINE
     Dosage: 75 MILLIGRAM, QD (CLOZAPINE TITRATED TO 50 MG IN THE MORNING AND 75 MG IN THE EVENING SPAN OF 7 DAYS
     Route: 048
  5. CLOZAPINE [Interacting]
     Active Substance: CLOZAPINE
     Dosage: 50 MILLIGRAM, BID (ON DAY 50)
     Route: 048
  6. CLOZAPINE [Interacting]
     Active Substance: CLOZAPINE
     Dosage: 75 MILLIGRAM, QD (ON DAY 60 CLOZAPINE TITRATED TO 50 MG IN THE MORNING AND 75 MG IN THE EVENING)
     Route: 048
  7. SENNOSIDES A AND B [Concomitant]
     Active Substance: SENNOSIDES A AND B
     Indication: Constipation
     Dosage: UNK
     Route: 065
  8. LACTULOSE [Concomitant]
     Active Substance: LACTULOSE
     Indication: Constipation
     Dosage: UNK
     Route: 065
  9. POLYETHYLENE GLYCOLS [Concomitant]
     Active Substance: POLYETHYLENE GLYCOLS
     Indication: Constipation
     Dosage: UNK
     Route: 065

REACTIONS (3)
  - Therapeutic product effect increased [Unknown]
  - Drug interaction [Unknown]
  - Antipsychotic drug level increased [Unknown]
